FAERS Safety Report 9555118 (Version 1)
Quarter: 2013Q3

REPORT INFORMATION
  Report Type: Spontaneous
  Country: US (occurrence: None)
  Receive Date: 20130815
  Receipt Date: 20130815
  Transmission Date: 20140515
  Serious: Yes (Other)
  Sender: FDA-Public Use
  Company Number: ADR-2012-02269

PATIENT
  Age: 61 Year
  Sex: Male

DRUGS (1)
  1. BACLOFEN INTRATHECAL [Suspect]
     Indication: PAIN

REACTIONS (4)
  - Pain in extremity [None]
  - Urinary retention [None]
  - Radicular pain [None]
  - Nerve root injury [None]
